FAERS Safety Report 8383531-1 (Version None)
Quarter: 2012Q2

REPORT INFORMATION
  Report Type: 
  Country: None (occurrence: None)
  Receive Date: 20120524
  Receipt Date: 20120515
  Transmission Date: 20120825
  Serious: Yes (Hospitalization, Other)
  Sender: FDA-Public Use
  Company Number: US-ASTRAZENECA-2010SE33874

PATIENT
  Age: 71 Year
  Sex: Female
  Weight: 46.3 kg

DRUGS (10)
  1. NEXIUM [Suspect]
     Indication: GASTROOESOPHAGEAL REFLUX DISEASE
     Route: 048
     Dates: start: 20091003
  2. KEPPRA [Concomitant]
  3. SEROQUEL XR [Suspect]
     Indication: DEPRESSION
     Route: 048
     Dates: start: 20101003
  4. DIAZEPAM [Concomitant]
  5. PARNATE [Concomitant]
     Indication: MIGRAINE
  6. PREVACID [Concomitant]
  7. SIMVASTATIN [Concomitant]
  8. PROTONIX [Concomitant]
  9. VICODIN [Concomitant]
     Indication: PAIN
  10. PARNATE [Concomitant]
     Indication: HEADACHE

REACTIONS (11)
  - INTENTIONAL DRUG MISUSE [None]
  - FALL [None]
  - DISCOMFORT [None]
  - HALLUCINATION, AUDITORY [None]
  - CHEST DISCOMFORT [None]
  - GASTROOESOPHAGEAL REFLUX DISEASE [None]
  - HIP FRACTURE [None]
  - ABDOMINAL PAIN [None]
  - CONVULSION [None]
  - ARTHRALGIA [None]
  - ABDOMINAL PAIN UPPER [None]
